FAERS Safety Report 6025996-6 (Version None)
Quarter: 2008Q4

REPORT INFORMATION
  Report Type: 
  Country: None (occurrence: None)
  Receive Date: 20081230
  Receipt Date: 20081210
  Transmission Date: 20090506
  Serious: Yes (Death)
  Sender: FDA-Public Use
  Company Number: 2008AL010344

PATIENT
  Age: 74 Year
  Sex: Male

DRUGS (7)
  1. DIGOXIN [Suspect]
     Dosage: 0.25MG, PO
     Route: 048
  2. INSULIN [Concomitant]
  3. MIRTAZAPINE [Concomitant]
  4. HYDROCODONE [Concomitant]
  5. NEXIUM [Concomitant]
  6. COREG [Concomitant]
  7. LORAZEPAM [Concomitant]

REACTIONS (6)
  - COUGH [None]
  - DYSPNOEA [None]
  - INJURY [None]
  - MENTAL STATUS CHANGES [None]
  - PITTING OEDEMA [None]
  - UNRESPONSIVE TO STIMULI [None]
